FAERS Safety Report 25894900 (Version 2)
Quarter: 2025Q4

REPORT INFORMATION
  Report Type: Spontaneous
  Country: US (occurrence: US)
  Receive Date: 20251008
  Receipt Date: 20251208
  Transmission Date: 20260117
  Serious: No
  Sender: MYLAN
  Company Number: US-MYLANLABS-2025M1081808

PATIENT
  Age: 70 Year
  Sex: Male
  Weight: 78 kg

DRUGS (1)
  1. BREYNA [Suspect]
     Active Substance: BUDESONIDE\FORMOTEROL FUMARATE
     Indication: Asthma
     Dosage: 160/4.5 MICROGRAM, AM (2 SPRAYS ONCE PER DAY IN THE MORNING)
     Dates: start: 202509

REACTIONS (6)
  - Device difficult to use [Unknown]
  - Wrong technique in device usage process [Unknown]
  - Off label use [Unknown]
  - Device issue [Unknown]
  - Device malfunction [Unknown]
  - Device delivery system issue [Unknown]

NARRATIVE: CASE EVENT DATE: 20250901
